FAERS Safety Report 4948636-3 (Version None)
Quarter: 2006Q1

REPORT INFORMATION
  Report Type: 
  Country: None (occurrence: None)
  Receive Date: 20060313
  Receipt Date: 20060309
  Transmission Date: 20060701
  Serious: No
  Sender: FDA-Public Use
  Company Number: GB-2006-000581

PATIENT
  Age: 43 Year
  Sex: Female

DRUGS (1)
  1. MIRENA [Suspect]
     Dosage: 20 UG/DAY, CONT, INTRAUTERINE
     Route: 015
     Dates: start: 20050701

REACTIONS (4)
  - BREAST DISCHARGE [None]
  - BREAST TENDERNESS [None]
  - ECZEMA [None]
  - HIRSUTISM [None]
